FAERS Safety Report 18786467 (Version 1)
Quarter: 2021Q1

REPORT INFORMATION
  Report Type: Other
  Country: US (occurrence: US)
  Receive Date: 20210125
  Receipt Date: 20210125
  Transmission Date: 20210419
  Serious: No
  Sender: FDA-Public Use
  Company Number: US-ACORDA-ACO_163567_2020

PATIENT
  Sex: Male

DRUGS (2)
  1. AMPYRA [Suspect]
     Active Substance: DALFAMPRIDINE
     Indication: PRODUCT USED FOR UNKNOWN INDICATION
     Dosage: UNK
     Route: 065
  2. OCREVUS [Suspect]
     Active Substance: OCRELIZUMAB
     Indication: PRODUCT USED FOR UNKNOWN INDICATION
     Dosage: UNK
     Route: 065

REACTIONS (10)
  - Condition aggravated [Unknown]
  - Gait disturbance [Unknown]
  - Fatigue [Unknown]
  - Therapeutic response unexpected [Unknown]
  - Dizziness [Unknown]
  - Muscle spasms [Not Recovered/Not Resolved]
  - Foot deformity [Unknown]
  - Asthenia [Unknown]
  - Dystonia [Unknown]
  - Temperature intolerance [Unknown]
